FAERS Safety Report 5315323-1 (Version None)
Quarter: 2007Q2

REPORT INFORMATION
  Report Type: 
  Country: None (occurrence: None)
  Receive Date: 20070502
  Receipt Date: 20070420
  Transmission Date: 20071010
  Serious: Yes (Hospitalization)
  Sender: FDA-Public Use
  Company Number: US-PFIZER INC-2007032797

PATIENT
  Sex: Female
  Weight: 58.1 kg

DRUGS (8)
  1. CHANTIX [Suspect]
     Indication: EX-SMOKER
  2. FORADIL [Concomitant]
     Route: 055
  3. ALBUTEROL [Concomitant]
     Route: 055
  4. MEDROL [Concomitant]
  5. ANTIBIOTICS [Concomitant]
  6. ALPRAZOLAM [Concomitant]
  7. ALBUTEROL [Concomitant]
     Route: 055
  8. PRILOSEC [Concomitant]

REACTIONS (2)
  - NAUSEA [None]
  - PNEUMONIA PRIMARY ATYPICAL [None]
